FAERS Safety Report 4525461-9 (Version None)
Quarter: 2004Q4

REPORT INFORMATION
  Report Type: 
  Country: None (occurrence: None)
  Receive Date: 20041210
  Receipt Date: 20041126
  Transmission Date: 20050328
  Serious: Yes (Hospitalization)
  Sender: FDA-Public Use
  Company Number: US-SHR-03-007598

PATIENT
  Age: 43 Year
  Sex: Female
  Weight: 49.9 kg

DRUGS (2)
  1. BETASERON [Suspect]
     Indication: MULTIPLE SCLEROSIS
     Dosage: 8 MIU/M2, EVERY 2D, SUBCUTANEOUS
     Route: 058
     Dates: start: 19961105
  2. PREDNISONE TAB [Concomitant]

REACTIONS (2)
  - PLEURAL EFFUSION [None]
  - PNEUMOTHORAX [None]
